FAERS Safety Report 10167676 (Version 1)
Quarter: 2014Q2

REPORT INFORMATION
  Report Type: Spontaneous
  Country: US (occurrence: None)
  Receive Date: 20140508
  Receipt Date: 20140508
  Transmission Date: 20141212
  Serious: Yes (Hospitalization)
  Sender: FDA-Public Use
  Company Number: UTC-048080

PATIENT
  Age: 31 Year
  Sex: Female

DRUGS (2)
  1. TYVASO [Suspect]
     Indication: PULMONARY HYPERTENSION
     Dosage: 72 MCG 4 IN 1 D
     Route: 055
     Dates: start: 20131031
  2. LETAIRIS (AMBRISENTAN) (UNKNOWN) [Concomitant]
     Dosage: 72 MCG 4 IN 1 D

REACTIONS (1)
  - Limb injury [None]
